FAERS Safety Report 20224658 (Version 1)
Quarter: 2021Q4

REPORT INFORMATION
  Report Type: Spontaneous
  Country: US (occurrence: US)
  Receive Date: 20211223
  Receipt Date: 20211223
  Transmission Date: 20220303
  Serious: Yes (Other)
  Sender: FDA-Public Use
  Company Number: US-GILEAD-2021-0561273

PATIENT
  Sex: Male

DRUGS (1)
  1. VEKLURY [Suspect]
     Active Substance: REMDESIVIR
     Indication: COVID-19
     Dosage: UNK
     Route: 065
     Dates: start: 202109, end: 202109

REACTIONS (4)
  - Pulmonary thrombosis [Unknown]
  - Anxiety [Not Recovered/Not Resolved]
  - Recalled product administered [Recovered/Resolved]
  - Recalled product [Recovered/Resolved]
